FAERS Safety Report 14023764 (Version 1)
Quarter: 2017Q3

REPORT INFORMATION
  Report Type: Spontaneous
  Country: US (occurrence: US)
  Receive Date: 20170928
  Receipt Date: 20170928
  Transmission Date: 20171128
  Serious: Yes (Other)
  Sender: FDA-Public Use
  Company Number: US-SA-2017SA033083

PATIENT
  Age: 45 Year
  Sex: Female

DRUGS (4)
  1. VITAMIN D3 [Concomitant]
     Active Substance: CHOLECALCIFEROL
  2. AMPYRA [Concomitant]
     Active Substance: DALFAMPRIDINE
  3. AUBAGIO [Suspect]
     Active Substance: TERIFLUNOMIDE
     Indication: MULTIPLE SCLEROSIS
     Route: 048
  4. VITAMIN B12 [Concomitant]
     Active Substance: CYANOCOBALAMIN

REACTIONS (4)
  - Arthralgia [Unknown]
  - Asthenia [Unknown]
  - Multiple sclerosis [Unknown]
  - Fall [Unknown]

NARRATIVE: CASE EVENT DATE: 201702
